FAERS Safety Report 4760135-0 (Version None)
Quarter: 2005Q3

REPORT INFORMATION
  Report Type: 
  Country: None (occurrence: None)
  Receive Date: 20050902
  Receipt Date: 20050705
  Transmission Date: 20060218
  Serious: No
  Sender: FDA-Public Use
  Company Number: US-GLAXOSMITHKLINE-A0564945A

PATIENT
  Age: 58 Year
  Sex: Female

DRUGS (8)
  1. REQUIP [Suspect]
     Indication: RESTLESS LEGS SYNDROME
     Dosage: .5MG PER DAY
     Route: 048
     Dates: start: 20050701
  2. PREVACID [Concomitant]
  3. CLARITIN [Concomitant]
  4. OXAZEPAM [Concomitant]
  5. VITAMINS [Concomitant]
  6. RISPERDAL [Concomitant]
  7. SINGULAIR [Concomitant]
  8. TEMAZEPAM [Concomitant]

REACTIONS (2)
  - INSOMNIA [None]
  - PARAESTHESIA [None]
